FAERS Safety Report 11768246 (Version 1)
Quarter: 2015Q4

REPORT INFORMATION
  Report Type: Spontaneous
  Country: US (occurrence: US)
  Receive Date: 20151123
  Receipt Date: 20151123
  Transmission Date: 20160304
  Serious: No
  Sender: FDA-Public Use
  Company Number: US-TEVA-547083USA

PATIENT
  Sex: Female
  Weight: 113.5 kg

DRUGS (2)
  1. TRAZODONE [Concomitant]
     Active Substance: TRAZODONE HYDROCHLORIDE
  2. CLOZAPINE. [Suspect]
     Active Substance: CLOZAPINE
     Indication: AFFECTIVE DISORDER
     Dosage: FORM OF ADM UNKNOWN

REACTIONS (1)
  - Neutrophil count decreased [Unknown]
